FAERS Safety Report 5147760-2 (Version None)
Quarter: 2006Q4

REPORT INFORMATION
  Report Type: 
  Country: None (occurrence: None)
  Receive Date: 20061110
  Receipt Date: 20061102
  Transmission Date: 20070319
  Serious: Yes (Life-Threatening, Hospitalization, Other)
  Sender: FDA-Public Use
  Company Number: GB-BAYER-200611357BNE

PATIENT
  Age: 76 Year
  Sex: Male
  Weight: 90 kg

DRUGS (1)
  1. CIPROFLOXACIN [Suspect]
     Route: 041
     Dates: start: 20060926, end: 20060926

REACTIONS (1)
  - CARDIAC ARREST [None]
